FAERS Safety Report 9736305 (Version 1)
Quarter: 2013Q4

REPORT INFORMATION
  Report Type: Report from Study
  Country: ES (occurrence: ES)
  Receive Date: 20131206
  Receipt Date: 20131206
  Transmission Date: 20140711
  Serious: Yes (Hospitalization, Other)
  Sender: FDA-Public Use
  Company Number: ES-ROCHE-1308552

PATIENT
  Age: 63 Year
  Sex: 0

DRUGS (7)
  1. MYCOPHENOLATE MOFETIL [Suspect]
     Indication: LIVER TRANSPLANT
     Route: 065
  2. TACROLIMUS [Concomitant]
  3. PREDNISONE [Concomitant]
  4. NORFLOXACIN [Concomitant]
  5. NISTATINA [Concomitant]
  6. VALGANCICLOVIR [Concomitant]
  7. TRIMETOPRIM-SULFA [Concomitant]

REACTIONS (7)
  - Haemolytic anaemia [Recovered/Resolved]
  - Disseminated cytomegaloviral infection [Recovered/Resolved]
  - Bile duct stenosis [Recovered/Resolved]
  - Bacterial infection [Unknown]
  - Malnutrition [Unknown]
  - Diabetes mellitus [Unknown]
  - Confusional state [Unknown]
